FAERS Safety Report 4914122-X (Version None)
Quarter: 2006Q1

REPORT INFORMATION
  Report Type: 
  Country: None (occurrence: None)
  Receive Date: 20060113
  Receipt Date: 20051115
  Transmission Date: 20060701
  Serious: No
  Sender: FDA-Public Use
  Company Number: 2005SP003996

PATIENT
  Age: 64 Year
  Sex: Female
  Weight: 63.5036 kg

DRUGS (4)
  1. LUNESTA [Suspect]
     Indication: INSOMNIA
     Dosage: 2 MG;HS;ORAL
     Route: 048
     Dates: start: 20051108, end: 20051110
  2. EFFEXOR [Concomitant]
  3. WELLBUTRIN [Concomitant]
  4. TEMAZEPAM [Concomitant]

REACTIONS (1)
  - DYSGEUSIA [None]
